FAERS Safety Report 7009539-6 (Version None)
Quarter: 2010Q3

REPORT INFORMATION
  Report Type: 
  Country: None (occurrence: None)
  Receive Date: 20100923
  Receipt Date: 20100915
  Transmission Date: 20110219
  Serious: Yes (Other)
  Sender: FDA-Public Use
  Company Number: US-AMGEN-KDL434088

PATIENT
  Sex: Female
  Weight: 71.3 kg

DRUGS (1)
  1. PROLIA [Suspect]
     Indication: OSTEOPOROSIS POSTMENOPAUSAL
     Route: 058
     Dates: start: 20100727

REACTIONS (2)
  - INTERVERTEBRAL DISC DEGENERATION [None]
  - THORACIC VERTEBRAL FRACTURE [None]
